FAERS Safety Report 5317214-9 (Version None)
Quarter: 2007Q2

REPORT INFORMATION
  Report Type: 
  Country: None (occurrence: None)
  Receive Date: 20070504
  Receipt Date: 20070424
  Transmission Date: 20071010
  Serious: Yes (Hospitalization)
  Sender: FDA-Public Use
  Company Number: DE-PFIZER INC-2007031268

PATIENT
  Age: 39 Year
  Sex: Male

DRUGS (1)
  1. CHAMPIX [Suspect]
     Indication: DRUG WITHDRAWAL SYNDROME
     Route: 048
     Dates: start: 20070101

REACTIONS (3)
  - CONTUSION [None]
  - FALL [None]
  - SYNCOPE [None]
